FAERS Safety Report 8288897-9 (Version None)
Quarter: 2012Q2

REPORT INFORMATION
  Report Type: 
  Country: None (occurrence: None)
  Receive Date: 20120412
  Receipt Date: 20120329
  Transmission Date: 20120825
  Serious: Yes (Life-Threatening, Hospitalization)
  Sender: FDA-Public Use
  Company Number: US-2011-10679

PATIENT
  Age: 41 Year
  Sex: Male
  Weight: 77 kg

DRUGS (3)
  1. CYCLOPHOSPHAMIDE [Suspect]
     Indication: BONE MARROW CONDITIONING REGIMEN
     Dosage: 60 MG/KG, QD
     Dates: start: 20110821, end: 20110822
  2. CYCLOSPORINE [Concomitant]
  3. BUSULFEX [Suspect]
     Indication: BONE MARROW CONDITIONING REGIMEN
     Dosage: 3.2 MG/KG, DAILY DOSE, INTRAVENOUS
     Route: 042
     Dates: start: 20110816, end: 20110819

REACTIONS (19)
  - BONE MARROW FAILURE [None]
  - BACTERIAL INFECTION [None]
  - CHOLESTASIS [None]
  - LEFT VENTRICULAR DYSFUNCTION [None]
  - STAPHYLOCOCCAL INFECTION [None]
  - BILE DUCT STONE [None]
  - BLOOD CULTURE POSITIVE [None]
  - MUCOSAL INFLAMMATION [None]
  - MULTI-ORGAN FAILURE [None]
  - SOMNOLENCE [None]
  - CONFUSIONAL STATE [None]
  - MIOSIS [None]
  - RENAL FAILURE [None]
  - PSEUDOMONAS INFECTION [None]
  - CHOLANGITIS [None]
  - SEPTIC SHOCK [None]
  - ACUTE RESPIRATORY DISTRESS SYNDROME [None]
  - JAUNDICE [None]
  - OVERDOSE [None]
